FAERS Safety Report 16712232 (Version 1)
Quarter: 2019Q3

REPORT INFORMATION
  Report Type: Spontaneous
  Country: CA (occurrence: CA)
  Receive Date: 20190816
  Receipt Date: 20190816
  Transmission Date: 20191004
  Serious: Yes (Other)
  Sender: FDA-Public Use
  Company Number: CA-B.I. PHARMACEUTICALS,INC./RIDGEFIELD-2019-BI-033240

PATIENT
  Age: 67 Year
  Sex: Female
  Weight: 96 kg

DRUGS (6)
  1. ADVAIR HFA [Suspect]
     Active Substance: FLUTICASONE PROPIONATE\SALMETEROL XINAFOATE
     Indication: ASTHMA
     Route: 055
  2. MEPOLIZUMAB [Suspect]
     Active Substance: MEPOLIZUMAB
     Indication: ASTHMA
     Route: 042
  3. SINGULAIR [Suspect]
     Active Substance: MONTELUKAST SODIUM
     Indication: PRODUCT USED FOR UNKNOWN INDICATION
     Route: 065
  4. VENTOLIN [Suspect]
     Active Substance: ALBUTEROL SULFATE
     Indication: ASTHMA
     Route: 065
  5. SPIRIVA [Suspect]
     Active Substance: TIOTROPIUM BROMIDE MONOHYDRATE
     Indication: ASTHMA
     Route: 065
  6. ZENHALE [Suspect]
     Active Substance: FORMOTEROL FUMARATE\MOMETASONE FUROATE
     Indication: PRODUCT USED FOR UNKNOWN INDICATION
     Dosage: DOSAGE: AEROSOL, METERED DOSE
     Route: 065

REACTIONS (16)
  - Asthma [Recovered/Resolved]
  - Eye irritation [Recovered/Resolved]
  - Increased upper airway secretion [Recovered/Resolved]
  - Obstructive airways disorder [Recovered/Resolved]
  - Sinus headache [Recovered/Resolved]
  - Respiratory disorder [Recovered/Resolved]
  - Blood count abnormal [Recovered/Resolved]
  - Lacrimation increased [Recovered/Resolved]
  - Therapeutic product effect incomplete [Recovered/Resolved]
  - Rhinorrhoea [Recovered/Resolved]
  - Condition aggravated [Recovered/Resolved]
  - Dyspnoea exertional [Recovered/Resolved]
  - Sneezing [Recovered/Resolved]
  - Breast cancer female [Recovered/Resolved]
  - Chest discomfort [Recovered/Resolved]
  - Wheezing [Recovered/Resolved]
